FAERS Safety Report 9469628 (Version 3)
Quarter: 2013Q4

REPORT INFORMATION
  Report Type: Spontaneous
  Country: DE (occurrence: DE)
  Receive Date: 20130822
  Receipt Date: 20131015
  Transmission Date: 20140711
  Serious: Yes (Other)
  Sender: FDA-Public Use
  Company Number: DE-AMGEN-DEUSP2013044326

PATIENT
  Age: 89 Year
  Sex: Male

DRUGS (2)
  1. PROLIA [Suspect]
     Indication: OSTEOPOROSIS
     Dosage: 60 MG, UNK
     Route: 058
     Dates: start: 20120719
  2. VITAMIN D                          /00107901/ [Concomitant]
     Indication: OSTEOPOROSIS
     Dosage: UNK UNK, QD
     Dates: start: 1981

REACTIONS (4)
  - Impaired healing [Not Recovered/Not Resolved]
  - Exposed bone in jaw [Not Recovered/Not Resolved]
  - Oral disorder [Not Recovered/Not Resolved]
  - Tooth disorder [Not Recovered/Not Resolved]
